FAERS Safety Report 15598724 (Version 1)
Quarter: 2018Q4

REPORT INFORMATION
  Report Type: Spontaneous
  Country: ES (occurrence: ES)
  Receive Date: 20181108
  Receipt Date: 20181108
  Transmission Date: 20190205
  Serious: Yes (Other)
  Sender: FDA-Public Use
  Company Number: ES-ASTRAZENECA-2018SF43333

PATIENT
  Age: 79 Year
  Sex: Female

DRUGS (3)
  1. DAPAGLIFLOZIN. [Suspect]
     Active Substance: DAPAGLIFLOZIN
     Indication: DIABETES MELLITUS
     Dosage: 10.0MG UNKNOWN
     Route: 048
     Dates: start: 20170523, end: 20181017
  2. REPAGLINIDE. [Suspect]
     Active Substance: REPAGLINIDE
     Indication: DIABETES MELLITUS
     Route: 048
     Dates: start: 20180315
  3. PANTOPRAZOL [Suspect]
     Active Substance: PANTOPRAZOLE SODIUM
     Indication: PROPHYLAXIS AGAINST GASTROINTESTINAL ULCER
     Route: 048
     Dates: start: 20170426, end: 20181017

REACTIONS (3)
  - Memory impairment [Unknown]
  - Decreased appetite [Unknown]
  - Somnolence [Unknown]

NARRATIVE: CASE EVENT DATE: 201705
